FAERS Safety Report 6326327-4 (Version None)
Quarter: 2009Q3

REPORT INFORMATION
  Report Type: 
  Country: None (occurrence: None)
  Receive Date: 20090821
  Receipt Date: 20090817
  Transmission Date: 20100115
  Serious: Yes (Hospitalization)
  Sender: FDA-Public Use
  Company Number: WAES0908USA02873

PATIENT
  Age: 69 Year
  Sex: Male
  Weight: 80.7403 kg

DRUGS (16)
  1. COZAAR [Suspect]
     Dosage: PO
     Route: 048
  2. SUNITINIB MALATE UNK [Suspect]
     Indication: RENAL CELL CARCINOMA
     Dosage: PO
     Route: 048
     Dates: start: 20061213, end: 20070101
  3. CLONIDINE [Suspect]
  4. LASIX [Suspect]
  5. MICARDIS [Suspect]
  6. TOPROL-XL [Suspect]
  7. FLOMAX [Suspect]
  8. AMBIEN [Concomitant]
  9. ENBREL [Concomitant]
  10. LEXAPRO [Concomitant]
  11. LIPITOR [Concomitant]
  12. NEXIUM [Concomitant]
  13. GLIPIZIDE [Concomitant]
  14. HYDROCODONE [Concomitant]
  15. METFORMIN HCL [Concomitant]
  16. PREDNISONE TAB [Concomitant]

REACTIONS (6)
  - BODY TEMPERATURE DECREASED [None]
  - DRUG TOLERANCE DECREASED [None]
  - FATIGUE [None]
  - HEADACHE [None]
  - HYPOTENSION [None]
  - MUCOSAL INFLAMMATION [None]
